FAERS Safety Report 6701142-8 (Version None)
Quarter: 2010Q2

REPORT INFORMATION
  Report Type: 
  Country: None (occurrence: None)
  Receive Date: 20100428
  Receipt Date: 20100426
  Transmission Date: 20101027
  Serious: Yes (Life-Threatening, Hospitalization)
  Sender: FDA-Public Use
  Company Number: GB-MERCK-1004GBR00103

PATIENT
  Age: 8 Year
  Sex: Male
  Weight: 25 kg

DRUGS (3)
  1. SINGULAIR [Suspect]
     Indication: LUNG DISORDER
     Route: 048
     Dates: start: 20080101
  2. ALBUTEROL [Concomitant]
     Route: 055
     Dates: start: 20040101
  3. FLUTICASONE PROPIONATE AND SALMETEROL XINAFOATE [Concomitant]
     Indication: LUNG DISORDER
     Route: 055
     Dates: start: 20080101

REACTIONS (2)
  - GASTRITIS EROSIVE [None]
  - UPPER GASTROINTESTINAL HAEMORRHAGE [None]
